FAERS Safety Report 23403683 (Version 1)
Quarter: 2024Q1

REPORT INFORMATION
  Report Type: Spontaneous
  Country: AU (occurrence: AU)
  Receive Date: 20240116
  Receipt Date: 20240116
  Transmission Date: 20240410
  Serious: Yes (Hospitalization)
  Sender: FDA-Public Use
  Company Number: AU-CIPLA LTD.-2024AU00498

PATIENT

DRUGS (22)
  1. IRINOTECAN [Suspect]
     Active Substance: IRINOTECAN
     Indication: Embryonal rhabdomyosarcoma
     Dosage: 50MG/M2 OR PER PROTOCOL ON D1-5 OF C2 AND 4 (CYCLICAL)
     Route: 065
  2. IRINOTECAN [Suspect]
     Active Substance: IRINOTECAN
     Dosage: 50MG/M2 FOR PER PROTOCOL ON D1-5 OF C6,7,9 (CYCLICAL)
     Route: 065
  3. IRINOTECAN [Suspect]
     Active Substance: IRINOTECAN
     Dosage: 50MG/M2 OR PER PROTOCOL ON D1-5 OF C11,13 (CYCLICAL)
     Route: 065
  4. TEMSIROLIMUS [Suspect]
     Active Substance: TEMSIROLIMUS
     Indication: Embryonal rhabdomyosarcoma
     Dosage: 15MG/M2 OR PER PROTOCOL DAYS (D) 1,8,15 (CYCLES 1-4)
     Route: 065
  5. TEMSIROLIMUS [Suspect]
     Active Substance: TEMSIROLIMUS
     Dosage: 15MG/M2 OR PER PROTOCOL ON D1,8,15 OF C8-10
     Route: 065
  6. TEMSIROLIMUS [Suspect]
     Active Substance: TEMSIROLIMUS
     Dosage: 15MG/M2 OR PER PROTOCOL D1,8,15 (11-14 CYCLES)
     Route: 065
  7. TEMSIROLIMUS [Suspect]
     Active Substance: TEMSIROLIMUS
     Dosage: UNK (DAY 1 COURSE 14)
     Route: 065
     Dates: start: 20220913
  8. TEMSIROLIMUS [Suspect]
     Active Substance: TEMSIROLIMUS
     Dosage: UNK (DAY 8 COURSE 14)
     Route: 065
     Dates: start: 20220920
  9. TEMSIROLIMUS [Suspect]
     Active Substance: TEMSIROLIMUS
     Dosage: UNK (DAY 15 COURSE 14)
     Route: 065
     Dates: start: 20220926, end: 20220926
  10. VINCRISTINE SULFATE [Suspect]
     Active Substance: VINCRISTINE SULFATE
     Indication: Embryonal rhabdomyosarcoma
     Dosage: 1.5MG/M2 OR PER PROTOCOL D1,8,15 (CYCLES 1-4)
     Route: 065
  11. VINCRISTINE SULFATE [Suspect]
     Active Substance: VINCRISTINE SULFATE
     Dosage: 1.5MG/M2 OR PER PROTOCOL ON D1 OF C5 AND 10 AND D1,8 OF C6,7,9 AND D1,8,15 OF C8
     Route: 065
  12. VINCRISTINE SULFATE [Suspect]
     Active Substance: VINCRISTINE SULFATE
     Dosage: 1.5MG/M2 OR PER PROTOCOL D1,8,15 OF CYCLE 11 AND D1 OF CYCLES 12,14 AND D1,8 OF CYCLE 13
     Route: 065
  13. VINCRISTINE SULFATE [Suspect]
     Active Substance: VINCRISTINE SULFATE
     Dosage: 1.2 MILLIGRAM
     Route: 065
     Dates: start: 20220913, end: 20220913
  14. DACTINOMYCIN [Suspect]
     Active Substance: DACTINOMYCIN
     Indication: Embryonal rhabdomyosarcoma
     Dosage: 0.05MG/KG OR PER PROTOCOL ON D1 OF C1 AND 3
     Route: 065
  15. DACTINOMYCIN [Suspect]
     Active Substance: DACTINOMYCIN
     Dosage: 0.05MG/KG OR PER PROTOCOL ON D1 OF C5,8,10
     Route: 065
  16. DACTINOMYCIN [Suspect]
     Active Substance: DACTINOMYCIN
     Dosage: 0.05MG/KG OR PER PROTOCOL ON D1 OF C12,14
     Route: 065
  17. DACTINOMYCIN [Suspect]
     Active Substance: DACTINOMYCIN
     Dosage: 0.95 MILLIGRAM
     Route: 065
     Dates: start: 20220913, end: 20220913
  18. CYCLOPHOSPHAMIDE [Suspect]
     Active Substance: CYCLOPHOSPHAMIDE
     Indication: Embryonal rhabdomyosarcoma
     Dosage: 1200MG/M2 OR PER PROTOCOL ON D1 OF C1AND 3
     Route: 065
  19. CYCLOPHOSPHAMIDE [Suspect]
     Active Substance: CYCLOPHOSPHAMIDE
     Dosage: 1200MG/M2 OR PER PROTOCOL ON D1 OF C5,8,10
     Route: 065
  20. CYCLOPHOSPHAMIDE [Suspect]
     Active Substance: CYCLOPHOSPHAMIDE
     Dosage: 1200MG/M2 OR PER PROTOCOL ON D1 OF C12,14
     Route: 065
  21. CYCLOPHOSPHAMIDE [Suspect]
     Active Substance: CYCLOPHOSPHAMIDE
     Dosage: 1200 MG/M2 QD (COURSE 1) (MAINTENANCE)
     Route: 065
     Dates: start: 20211202
  22. CYCLOPHOSPHAMIDE [Suspect]
     Active Substance: CYCLOPHOSPHAMIDE
     Dosage: 940 MILLIGRAM
     Route: 065
     Dates: start: 20220913, end: 20220913

REACTIONS (1)
  - Cystitis noninfective [Not Recovered/Not Resolved]

NARRATIVE: CASE EVENT DATE: 20220929
